FAERS Safety Report 21376702 (Version 5)
Quarter: 2022Q4

REPORT INFORMATION
  Report Type: Spontaneous
  Country: CA (occurrence: CA)
  Receive Date: 20220926
  Receipt Date: 20221025
  Transmission Date: 20230113
  Serious: Yes (Hospitalization, Other)
  Sender: FDA-Public Use
  Company Number: CA-PFIZER INC-202201094087

PATIENT
  Age: 64 Year
  Sex: Female
  Weight: 69 kg

DRUGS (2)
  1. XELJANZ [Suspect]
     Active Substance: TOFACITINIB CITRATE
     Indication: Colitis ulcerative
     Dosage: 10 MG 2X/DAY (BID) FOR 8 WEEKS, THEN 5 MG BID ,DISCONTINUED
     Route: 048
     Dates: start: 20220804, end: 2022
  2. CORTISONE [Concomitant]
     Active Substance: CORTISONE
     Dosage: UNK

REACTIONS (14)
  - Haematochezia [Not Recovered/Not Resolved]
  - Rectal haemorrhage [Not Recovered/Not Resolved]
  - Diarrhoea [Not Recovered/Not Resolved]
  - Stoma complication [Not Recovered/Not Resolved]
  - Dyschezia [Not Recovered/Not Resolved]
  - Burning sensation [Not Recovered/Not Resolved]
  - Rectal discharge [Not Recovered/Not Resolved]
  - Abdominal pain [Not Recovered/Not Resolved]
  - Nausea [Not Recovered/Not Resolved]
  - Faeces soft [Unknown]
  - Malaise [Recovering/Resolving]
  - Decreased appetite [Not Recovered/Not Resolved]
  - Pain in extremity [Not Recovered/Not Resolved]
  - Anorectal disorder [Not Recovered/Not Resolved]

NARRATIVE: CASE EVENT DATE: 20220101
